FAERS Safety Report 18366170 (Version 2)
Quarter: 2020Q4

REPORT INFORMATION
  Report Type: Spontaneous
  Country: US (occurrence: US)
  Receive Date: 20201009
  Receipt Date: 20201027
  Transmission Date: 20210114
  Serious: Yes (Death, Hospitalization)
  Sender: FDA-Public Use
  Company Number: US-ABBVIE-20K-163-3602598-00

PATIENT
  Age: 88 Year
  Sex: Male

DRUGS (1)
  1. IMBRUVICA [Suspect]
     Active Substance: IBRUTINIB
     Indication: DIFFUSE LARGE B-CELL LYMPHOMA
     Route: 048
     Dates: start: 20200325, end: 202005

REACTIONS (4)
  - Anaemia [Unknown]
  - Pneumonia [Unknown]
  - Malignant neoplasm progression [Fatal]
  - Asthenia [Unknown]

NARRATIVE: CASE EVENT DATE: 20200520
